FAERS Safety Report 7418771-9 (Version None)
Quarter: 2011Q2

REPORT INFORMATION
  Report Type: 
  Country: None (occurrence: None)
  Receive Date: 20110415
  Receipt Date: 20110412
  Transmission Date: 20111010
  Serious: Yes (Other)
  Sender: FDA-Public Use
  Company Number: DZ-ABBOTT-11P-003-0712984-00

PATIENT
  Age: 30 Year
  Sex: Female

DRUGS (1)
  1. SEVOFLURANE [Suspect]
     Indication: ACCIDENTAL EXPOSURE

REACTIONS (2)
  - INFERTILITY FEMALE [None]
  - ABORTION SPONTANEOUS [None]
